FAERS Safety Report 23939063 (Version 1)
Quarter: 2024Q2

REPORT INFORMATION
  Report Type: Spontaneous
  Country: JP (occurrence: JP)
  Receive Date: 20240604
  Receipt Date: 20240604
  Transmission Date: 20240716
  Serious: Yes (Hospitalization)
  Sender: FDA-Public Use
  Company Number: None

PATIENT
  Age: 78 Year
  Sex: Male

DRUGS (1)
  1. PREDNISOLONE [Suspect]
     Active Substance: PREDNISOLONE
     Indication: Nephrotic syndrome
     Dosage: 2.5 MILLIGRAM, QD
     Route: 065

REACTIONS (2)
  - Glossitis [Recovered/Resolved]
  - Laryngeal oedema [Recovered/Resolved]
